FAERS Safety Report 17647098 (Version 4)
Quarter: 2020Q3

REPORT INFORMATION
  Report Type: Spontaneous
  Country: CO (occurrence: CO)
  Receive Date: 20200408
  Receipt Date: 20200706
  Transmission Date: 20201102
  Serious: Yes (Hospitalization, Other)
  Sender: FDA-Public Use
  Company Number: CO-EMD SERONO-9145341

PATIENT
  Age: 54 Year
  Sex: Male
  Weight: 74 kg

DRUGS (12)
  1. MEKINIST [Suspect]
     Active Substance: TRAMETINIB DIMETHYL SULFOXIDE
     Route: 048
  2. TAFINLAR [Suspect]
     Active Substance: DABRAFENIB MESYLATE
     Route: 065
     Dates: start: 20200318
  3. MEKINIST [Suspect]
     Active Substance: TRAMETINIB DIMETHYL SULFOXIDE
     Route: 048
  4. TAFINLAR [Suspect]
     Active Substance: DABRAFENIB MESYLATE
     Indication: METASTATIC MALIGNANT MELANOMA
     Route: 065
     Dates: start: 20191220
  5. TAFINLAR [Suspect]
     Active Substance: DABRAFENIB MESYLATE
     Route: 048
  6. INSULIN [Concomitant]
     Active Substance: INSULIN NOS
     Indication: PRODUCT USED FOR UNKNOWN INDICATION
  7. METFORMIN [Suspect]
     Active Substance: METFORMIN HYDROCHLORIDE
     Indication: DIABETES MELLITUS
     Route: 048
  8. MEKINIST [Suspect]
     Active Substance: TRAMETINIB DIMETHYL SULFOXIDE
     Route: 048
  9. MEKINIST [Suspect]
     Active Substance: TRAMETINIB DIMETHYL SULFOXIDE
     Indication: METASTATIC MALIGNANT MELANOMA
     Route: 048
     Dates: start: 20191220
  10. SITAGLIPTIN [Concomitant]
     Active Substance: SITAGLIPTIN
     Indication: PRODUCT USED FOR UNKNOWN INDICATION
  11. MEKINIST [Suspect]
     Active Substance: TRAMETINIB DIMETHYL SULFOXIDE
     Route: 048
  12. TAFINLAR [Suspect]
     Active Substance: DABRAFENIB MESYLATE
     Route: 048

REACTIONS (7)
  - Pancreatitis [Unknown]
  - Off label use [Unknown]
  - Pyrexia [Unknown]
  - Hepatitis [Unknown]
  - Chills [Recovered/Resolved]
  - Blood glucose increased [Recovered/Resolved]
  - Brain neoplasm [Unknown]

NARRATIVE: CASE EVENT DATE: 2020
